FAERS Safety Report 9193824 (Version 1)
Quarter: 2013Q1

REPORT INFORMATION
  Report Type: Spontaneous
  Country: JP (occurrence: JP)
  Receive Date: 20130327
  Receipt Date: 20130327
  Transmission Date: 20140127
  Serious: Yes (Other)
  Sender: FDA-Public Use
  Company Number: JP-PFIZER INC-2013010085

PATIENT
  Age: 77 Year
  Sex: Male
  Weight: 36.9 kg

DRUGS (8)
  1. UNASYN-S [Suspect]
     Indication: PNEUMONIA ASPIRATION
     Dosage: 3 G, 2X/DAY
     Route: 041
     Dates: start: 20120531, end: 20120608
  2. WARFARIN [Suspect]
     Indication: EMBOLISM
     Dosage: 0.5 MG, 1X/DAY
     Route: 048
     Dates: start: 20050330, end: 20120531
  3. ETIZOLAM [Concomitant]
     Dosage: 1 MG, 2X/DAY
     Route: 048
     Dates: end: 20120531
  4. SENNOSIDE [Concomitant]
     Dosage: 36 MG, 1X/DAY
     Route: 048
     Dates: end: 20120531
  5. MYSLEE [Concomitant]
     Dosage: 5 MG, 1X/DAY
     Route: 048
     Dates: end: 20120531
  6. SELBEX [Concomitant]
     Dosage: 50 MG, 3X/DAY
     Route: 048
     Dates: end: 20120531
  7. RACOL NF [Concomitant]
     Dosage: 200 ML, 1X/DAY
     Dates: end: 20120531
  8. BFLUID [Concomitant]
     Indication: NUTRITIONAL SUPPLEMENTATION
     Dosage: 1 SACK, 2X/DAY
     Route: 041
     Dates: start: 20120531, end: 20120806

REACTIONS (1)
  - International normalised ratio increased [Recovered/Resolved]
